FAERS Safety Report 4290981-1 (Version None)
Quarter: 2004Q1

REPORT INFORMATION
  Report Type: 
  Country: None (occurrence: None)
  Receive Date: 20040211
  Receipt Date: 20031022
  Transmission Date: 20041129
  Serious: Yes (Other)
  Sender: FDA-Public Use
  Company Number: US-GLAXOSMITHKLINE-A0431176A

PATIENT
  Age: 54 Year
  Sex: Male

DRUGS (4)
  1. PAXIL [Suspect]
     Route: 048
  2. TOPROL-XL [Concomitant]
  3. UNKNOWN MEDICATION [Concomitant]
  4. NIASPAN [Concomitant]

REACTIONS (3)
  - BLOOD CREATINE PHOSPHOKINASE INCREASED [None]
  - MYALGIA [None]
  - MYASTHENIC SYNDROME [None]
